FAERS Safety Report 8603354-5 (Version None)
Quarter: 2012Q3

REPORT INFORMATION
  Report Type: 
  Country: None (occurrence: None)
  Receive Date: 20120817
  Receipt Date: 20120815
  Transmission Date: 20120928
  Serious: Yes (Death)
  Sender: FDA-Public Use
  Company Number: US-CELGENEUS-163-21880-12043147

PATIENT
  Sex: Female
  Weight: 87.622 kg

DRUGS (18)
  1. SERTRALINE HYDROCHLORIDE [Concomitant]
     Route: 048
  2. ZOLE [Concomitant]
     Dosage: 20 MILLIGRAM
     Route: 048
  3. PYRIDOSTIGMINE BROMIDE [Concomitant]
     Dosage: 22.5 MILLIGRAM
     Route: 048
  4. WARFARIN SODIUM [Concomitant]
     Dosage: 5 MILLIGRAM
     Route: 048
  5. PREDNISONE TAB [Concomitant]
     Dosage: 10 MILLIGRAM
     Route: 048
  6. OXYCODONE HCL [Concomitant]
     Dosage: 20 MILLIGRAM
     Route: 048
  7. LORTAB [Concomitant]
     Indication: PAIN
     Dosage: 5MG-500MG
     Route: 048
  8. FUROSEMIDE [Concomitant]
     Dosage: 20 MILLIGRAM
     Route: 048
  9. ONDANSETRON [Concomitant]
     Dosage: 24 MILLIGRAM
     Route: 048
  10. ZOLPIDEM [Concomitant]
     Dosage: 5 MILLIGRAM
     Route: 048
  11. DARIFENACIN [Concomitant]
     Dosage: 15 MILLIGRAM
     Route: 048
  12. LANTUS [Concomitant]
     Dosage: 6 UN
     Route: 058
  13. ENOXAPARIN [Concomitant]
     Dosage: 100MG/ML
     Route: 058
  14. CARVEDILOL [Concomitant]
     Dosage: 6.25 MILLIGRAM
     Route: 048
  15. POTASSIUM CHLORIDE [Concomitant]
     Dosage: 15 MILLIEQUIVALENTS
     Route: 048
  16. REVLIMID [Suspect]
     Indication: DIFFUSE LARGE B-CELL LYMPHOMA
     Dosage: 15 MILLIGRAM
     Route: 048
     Dates: start: 20111130, end: 20120417
  17. SIMVASTATIN [Concomitant]
     Dosage: 20 MILLIGRAM
     Route: 048
  18. WARFARIN SODIUM [Concomitant]
     Dosage: 7.5 MILLIGRAM
     Route: 048

REACTIONS (1)
  - DEATH [None]
